FAERS Safety Report 16062864 (Version 3)
Quarter: 2019Q2

REPORT INFORMATION
  Report Type: Spontaneous
  Country: US (occurrence: US)
  Receive Date: 20190312
  Receipt Date: 20190411
  Transmission Date: 20190711
  Serious: No
  Sender: FDA-Public Use
  Company Number: US-009507513-1903USA004712

PATIENT
  Sex: Female

DRUGS (1)
  1. ZETIA [Suspect]
     Active Substance: EZETIMIBE
     Dosage: UNK
     Route: 048

REACTIONS (6)
  - Arthralgia [Unknown]
  - Bone pain [Unknown]
  - Asthenia [Unknown]
  - Drug intolerance [Unknown]
  - Movement disorder [Unknown]
  - Myalgia [Unknown]
